FAERS Safety Report 4993567-6 (Version None)
Quarter: 2006Q2

REPORT INFORMATION
  Report Type: 
  Country: None (occurrence: None)
  Receive Date: 20060504
  Receipt Date: 20060504
  Transmission Date: 20061013
  Serious: Yes (Hospitalization)
  Sender: FDA-Public Use
  Company Number: None

PATIENT
  Age: 68 Year
  Sex: Female
  Weight: 51 kg

DRUGS (7)
  1. CEFOXITIN [Suspect]
     Indication: ANTI-INFECTIVE THERAPY
     Dosage: 1 G  IV  Q6H
     Route: 042
     Dates: start: 20051210, end: 20051213
  2. ACETAMINOPHEN [Concomitant]
  3. HYDROMORPHONE HCL [Concomitant]
  4. METOPROLOL TARTRATE [Concomitant]
  5. MIDAZOLAM HCL [Concomitant]
  6. NEOSYNEPHRINE [Concomitant]
  7. ENOXAPARIN SODIUM [Concomitant]

REACTIONS (1)
  - PANCYTOPENIA [None]
